FAERS Safety Report 10653170 (Version 4)
Quarter: 2015Q1

REPORT INFORMATION
  Report Type: Spontaneous
  Country: JP (occurrence: JP)
  Receive Date: 20141215
  Receipt Date: 20150202
  Transmission Date: 20150720
  Serious: Yes (Life-Threatening, Other)
  Sender: FDA-Public Use
  Company Number: JP-GLAXOSMITHKLINE-JP2014JPN028126

PATIENT
  Age: 88 Year
  Sex: Female
  Weight: 27 kg

DRUGS (7)
  1. MEVALOTIN [Concomitant]
     Active Substance: PRAVASTATIN SODIUM
     Dosage: 10 MG, QD
  2. NAUZELIN [Concomitant]
     Active Substance: DOMPERIDONE
     Dosage: 10 MG, PRN
  3. MYSLEE [Concomitant]
     Active Substance: ZOLPIDEM TARTRATE
     Dosage: 5 MG, PRN
  4. VALTREX [Suspect]
     Active Substance: VALACYCLOVIR HYDROCHLORIDE
     Indication: HERPES ZOSTER
     Dosage: 1000 MG, TID
     Route: 048
     Dates: start: 20141119, end: 20141122
  5. CALSLOT [Concomitant]
     Active Substance: MANIDIPINE HYDROCHLORIDE
     Dosage: 10 MG, QD
  6. LOXONIN [Concomitant]
     Active Substance: LOXOPROFEN SODIUM
     Dosage: UNK, PRN
  7. LEVOFLOXACIN HEMIHYDRATE [Concomitant]
     Active Substance: LEVOFLOXACIN
     Indication: URINARY TRACT INFECTION
     Dosage: UNK

REACTIONS (7)
  - Toxic encephalopathy [Recovering/Resolving]
  - Hypophagia [Unknown]
  - Dehydration [Unknown]
  - Drug level increased [Unknown]
  - Depressed level of consciousness [Recovered/Resolved]
  - Glomerular filtration rate decreased [Unknown]
  - Renal impairment [Recovered/Resolved]

NARRATIVE: CASE EVENT DATE: 20141120
